FAERS Safety Report 9216889 (Version 1)
Quarter: 2013Q2

REPORT INFORMATION
  Report Type: Spontaneous
  Country: US (occurrence: US)
  Receive Date: 20130408
  Receipt Date: 20130408
  Transmission Date: 20140414
  Serious: No
  Sender: FDA-Public Use
  Company Number: US-BAYER-2013-043559

PATIENT
  Sex: 0

DRUGS (4)
  1. ALEVE CAPLET [Suspect]
     Indication: HEADACHE
  2. TYLENOL NOS [Concomitant]
  3. EXCEDRIN [Concomitant]
  4. LORTAB [Concomitant]

REACTIONS (1)
  - Drug ineffective [None]
